FAERS Safety Report 5217250-7 (Version None)
Quarter: 2007Q1

REPORT INFORMATION
  Report Type: 
  Country: None (occurrence: None)
  Receive Date: 20070122
  Receipt Date: 20070122
  Transmission Date: 20070707
  Serious: Yes (Hospitalization)
  Sender: FDA-Public Use
  Company Number: None

PATIENT
  Age: 54 Year
  Sex: Male
  Weight: 68.4932 kg

DRUGS (2)
  1. VANCOMYCIN [Suspect]
     Route: 042
  2. CIPROFLOXACIN [Suspect]
     Route: 048

REACTIONS (3)
  - ASTHENIA [None]
  - CLOSTRIDIUM DIFFICILE COLITIS [None]
  - MALAISE [None]
